FAERS Safety Report 20309334 (Version 1)
Quarter: 2022Q1

REPORT INFORMATION
  Report Type: Report from Study
  Country: NL (occurrence: None)
  Receive Date: 20220107
  Receipt Date: 20220107
  Transmission Date: 20220423
  Serious: Yes (Hospitalization)
  Sender: FDA-Public Use
  Company Number: NL-ROCHE-2992799

PATIENT
  Age: 54 Year
  Sex: Female

DRUGS (3)
  1. TRASTUZUMAB [Suspect]
     Active Substance: TRASTUZUMAB
     Indication: Neoplasm
     Dosage: 8MG/KG = 693MG, MOST CURRENT ADMINISTRATION ON 03/DEC/2021
     Route: 042
     Dates: start: 20211203
  2. PERTUZUMAB [Suspect]
     Active Substance: PERTUZUMAB
     Indication: Neoplasm
     Dosage: MOST CURRENT ADMINISTRATION ON 03/DEC/2021
     Route: 042
     Dates: start: 20211203
  3. DEXAMETHASONE [Concomitant]
     Active Substance: DEXAMETHASONE
     Dates: start: 20211109

REACTIONS (1)
  - Haemolytic anaemia [Recovering/Resolving]

NARRATIVE: CASE EVENT DATE: 20211228
